FAERS Safety Report 8900586 (Version 1)
Quarter: 2012Q4

REPORT INFORMATION
  Report Type: 
  Country: JP (occurrence: JP)
  Receive Date: 20121109
  Receipt Date: 20121109
  Transmission Date: 20130627
  Serious: Yes (Hospitalization)
  Sender: FDA-Public Use
  Company Number: JP-B.I. PHARMACEUTICALS,INC./RIDGEFIELD-2012-BP-27245NB

PATIENT
  Age: 84 Year
  Sex: Female

DRUGS (9)
  1. MICARDIS [Suspect]
     Indication: HYPERTENSION
     Dosage: 40 mg
     Route: 048
     Dates: start: 201207
  2. PRAVASTATIN SODIUM [Concomitant]
     Indication: HYPERLIPIDAEMIA
     Route: 048
  3. NIFEDIPINE [Concomitant]
     Indication: HYPERTENSION
     Route: 048
  4. LIXIANA (EDOXABAN TOSILATE HYDRATE) [Concomitant]
     Indication: OSTEOARTHRITIS
     Route: 048
  5. FAMOTIDINE [Concomitant]
     Route: 048
  6. CALFINA [Concomitant]
     Route: 048
  7. MEDICON (DEXTROMETHORPHAN HYDROBROMIDE HYDRATE) [Concomitant]
     Route: 048
  8. FERROMIA (SODIUM FERROUS CITRATE) [Concomitant]
     Route: 048
  9. LOXOPROFEN [Concomitant]
     Route: 048

REACTIONS (2)
  - Osteoarthritis [Unknown]
  - Productive cough [Not Recovered/Not Resolved]
